FAERS Safety Report 13924728 (Version 2)
Quarter: 2017Q3

REPORT INFORMATION
  Report Type: Spontaneous
  Country: JP (occurrence: JP)
  Receive Date: 20170831
  Receipt Date: 20170925
  Transmission Date: 20171127
  Serious: Yes (Other)
  Sender: FDA-Public Use
  Company Number: US-ASTRAZENECA-2017SE86867

PATIENT
  Age: 82 Year
  Sex: Male

DRUGS (16)
  1. TRAMCET [Interacting]
     Active Substance: ACETAMINOPHEN\TRAMADOL
     Route: 048
     Dates: start: 20150803, end: 20160621
  2. TAKECAB [Interacting]
     Active Substance: VONOPRAZAN FUMURATE
     Route: 048
  3. NEUROVITAN /00176001/ [Interacting]
     Active Substance: CYANOCOBALAMIN\PYRIDOXINE HYDROCHLORIDE\THIAMINE
     Route: 048
  4. ZOLPIDEM TARTRATE. [Interacting]
     Active Substance: ZOLPIDEM TARTRATE
     Route: 048
  5. MOSAPRIDE CITRATE [Interacting]
     Active Substance: MOSAPRIDE CITRATE
     Route: 048
  6. URSODEOXYCHOLIC ACID [Interacting]
     Active Substance: URSODIOL
     Route: 048
  7. NEXIUM [Suspect]
     Active Substance: ESOMEPRAZOLE MAGNESIUM
     Indication: GASTROOESOPHAGEAL REFLUX DISEASE
     Route: 048
  8. LYRICA [Interacting]
     Active Substance: PREGABALIN
     Route: 048
     Dates: start: 20150803
  9. TAMSULOSIN HYDROCHLORIDE. [Interacting]
     Active Substance: TAMSULOSIN HYDROCHLORIDE
     Dosage: 0.2 MG/DAY, ORODISPERSIBLE TABLET
     Route: 048
  10. DAIOU (HERBALS) [Interacting]
     Active Substance: HERBALS
     Route: 048
  11. MAGMITT [Interacting]
     Active Substance: MAGNESIUM OXIDE
     Route: 048
  12. SENNOSIDE /00571901/ [Interacting]
     Active Substance: SENNOSIDES A AND B
     Route: 048
  13. DONEPEZIL HYDROCHLORIDE. [Interacting]
     Active Substance: DONEPEZIL HYDROCHLORIDE
     Route: 048
  14. LYRICA [Interacting]
     Active Substance: PREGABALIN
     Route: 048
     Dates: end: 20160621
  15. BENZALIN /00036201/ [Interacting]
     Active Substance: NITRAZEPAM
     Route: 048
  16. ASPARA-CA [Interacting]
     Active Substance: CALCIUM ASPARTATE
     Route: 048

REACTIONS (2)
  - Dementia [Recovering/Resolving]
  - Drug interaction [Not Recovered/Not Resolved]

NARRATIVE: CASE EVENT DATE: 201601
